FAERS Safety Report 19605103 (Version 1)
Quarter: 2021Q3

REPORT INFORMATION
  Report Type: Spontaneous
  Country: US (occurrence: US)
  Receive Date: 20210723
  Receipt Date: 20210723
  Transmission Date: 20211014
  Serious: No
  Sender: FDA-Public Use
  Company Number: US-ENDO PHARMACEUTICALS INC-2021-004541

PATIENT
  Sex: Male

DRUGS (1)
  1. CALCITONIN?SALMON [Suspect]
     Active Substance: CALCITONIN SALMON
     Indication: PRODUCT USED FOR UNKNOWN INDICATION
     Dosage: UNK UNKNOWN, UNKNOWN
     Route: 045

REACTIONS (3)
  - Headache [Unknown]
  - Epistaxis [Unknown]
  - Off label use [Recovered/Resolved]
